FAERS Safety Report 8005787-7 (Version None)
Quarter: 2011Q4

REPORT INFORMATION
  Report Type: 
  Country: None (occurrence: None)
  Receive Date: 20111223
  Receipt Date: 20111214
  Transmission Date: 20120403
  Serious: Yes (Other)
  Sender: FDA-Public Use
  Company Number: FR-BRISTOL-MYERS SQUIBB COMPANY-16298226

PATIENT
  Age: 65 Year
  Sex: Female

DRUGS (3)
  1. HALDOL [Suspect]
  2. VALIUM [Suspect]
  3. ABILIFY [Suspect]
     Indication: BIPOLAR DISORDER

REACTIONS (2)
  - COGNITIVE DISORDER [None]
  - COMMUNICATION DISORDER [None]
